FAERS Safety Report 16856065 (Version 3)
Quarter: 2019Q4

REPORT INFORMATION
  Report Type: Spontaneous
  Country: US (occurrence: US)
  Receive Date: 20190926
  Receipt Date: 20191011
  Transmission Date: 20200122
  Serious: Yes (Death, Hospitalization, Disabling, Other)
  Sender: FDA-Public Use
  Company Number: US-ADVANZ PHARMA-201909000768

PATIENT

DRUGS (6)
  1. PAXIL [Concomitant]
     Active Substance: PAROXETINE HYDROCHLORIDE
     Dosage: UNK
  2. FLOMAX [Concomitant]
     Active Substance: TAMSULOSIN HYDROCHLORIDE
     Dosage: UNK
  3. VITAMIN D [Concomitant]
     Active Substance: VITAMIN D NOS
     Dosage: UNK
  4. MONTELUKAST [Concomitant]
     Active Substance: MONTELUKAST SODIUM
     Dosage: UNK
  5. HYDROXYCHLOROQUINE [Suspect]
     Active Substance: HYDROXYCHLOROQUINE
     Indication: CUTANEOUS SARCOIDOSIS
     Dosage: 200 MG, QD
     Route: 065
     Dates: start: 201409
  6. ASPIRIN. [Concomitant]
     Active Substance: ASPIRIN
     Dosage: UNK

REACTIONS (10)
  - Gait disturbance [Fatal]
  - Progressive multifocal leukoencephalopathy [Fatal]
  - Peroneal nerve palsy [Fatal]
  - Off label use [Unknown]
  - Facial paresis [Fatal]
  - Fall [Unknown]
  - Hypoaesthesia [Fatal]
  - Cognitive disorder [Fatal]
  - Hemiparesis [Fatal]
  - Muscular weakness [Fatal]

NARRATIVE: CASE EVENT DATE: 201707
